FAERS Safety Report 9381010 (Version 16)
Quarter: 2016Q4

REPORT INFORMATION
  Report Type: Spontaneous
  Country: CA (occurrence: CA)
  Receive Date: 20130703
  Receipt Date: 20161025
  Transmission Date: 20170207
  Serious: Yes (Hospitalization, Other)
  Sender: FDA-Public Use
  Company Number: CA-ROCHE-1243921

PATIENT
  Age: 61 Year
  Sex: Male

DRUGS (9)
  1. SYMBICORT [Concomitant]
     Active Substance: BUDESONIDE\FORMOTEROL FUMARATE DIHYDRATE
     Indication: PRODUCT USED FOR UNKNOWN INDICATION
     Dosage: UNK
     Route: 065
  2. XOLAIR [Suspect]
     Active Substance: OMALIZUMAB
     Indication: ASTHMA
     Dosage: 225 MG, BIW
     Route: 058
     Dates: start: 20120725
  3. SPIRIVA [Concomitant]
     Active Substance: TIOTROPIUM BROMIDE MONOHYDRATE
     Indication: PRODUCT USED FOR UNKNOWN INDICATION
     Dosage: UNK
     Route: 065
  4. SINGULAIR [Concomitant]
     Active Substance: MONTELUKAST SODIUM
     Indication: PRODUCT USED FOR UNKNOWN INDICATION
     Dosage: UNK
     Route: 065
  5. PREDNISONE. [Concomitant]
     Active Substance: PREDNISONE
     Indication: ASTHMA
     Dosage: UNK
     Route: 065
  6. PREDNISONE. [Concomitant]
     Active Substance: PREDNISONE
     Dosage: UNK
     Route: 065
     Dates: start: 201403
  7. ATROVENT [Concomitant]
     Active Substance: IPRATROPIUM BROMIDE
     Indication: PRODUCT USED FOR UNKNOWN INDICATION
     Dosage: UNK
     Route: 065
  8. SALBUTAMOL [Concomitant]
     Active Substance: ALBUTEROL
     Indication: PRODUCT USED FOR UNKNOWN INDICATION
     Dosage: UNK
     Route: 065
  9. THEOPHYLLINE [Concomitant]
     Active Substance: THEOPHYLLINE ANHYDROUS
     Indication: PRODUCT USED FOR UNKNOWN INDICATION
     Dosage: UNK
     Route: 065

REACTIONS (32)
  - Respiratory distress [Recovering/Resolving]
  - Visual impairment [Unknown]
  - Tracheal disorder [Unknown]
  - Rhinitis [Unknown]
  - Spasmodic dysphonia [Recovered/Resolved]
  - Pneumonia [Unknown]
  - Pyrexia [Unknown]
  - Asthenia [Unknown]
  - Oesophageal spasm [Unknown]
  - Foaming at mouth [Unknown]
  - Cough [Unknown]
  - Dyspnoea [Unknown]
  - Bacterial infection [Unknown]
  - Pseudomonas test positive [Unknown]
  - Oropharyngeal pain [Unknown]
  - Post procedural infection [Unknown]
  - Laryngospasm [Not Recovered/Not Resolved]
  - Brain stem syndrome [Unknown]
  - Forced expiratory volume decreased [Unknown]
  - Rhinorrhoea [Unknown]
  - Nasal congestion [Unknown]
  - Malaise [Unknown]
  - Post procedural discharge [Unknown]
  - Asthma [Unknown]
  - Meningitis [Unknown]
  - Anxiety [Unknown]
  - Balance disorder [Unknown]
  - Dizziness [Unknown]
  - Gastrooesophageal reflux disease [Unknown]
  - Urinary tract disorder [Recovering/Resolving]
  - Hand deformity [Unknown]
  - Fatigue [Unknown]

NARRATIVE: CASE EVENT DATE: 20120725
